FAERS Safety Report 15596279 (Version 2)
Quarter: 2018Q4

REPORT INFORMATION
  Report Type: Spontaneous
  Country: CA (occurrence: CA)
  Receive Date: 20181107
  Receipt Date: 20181213
  Transmission Date: 20190205
  Serious: Yes (Other)
  Sender: FDA-Public Use
  Company Number: PHHY2018CA142147

PATIENT
  Sex: Female

DRUGS (2)
  1. OLOPATADINE. [Suspect]
     Active Substance: OLOPATADINE
     Indication: EYE PRURITUS
     Dosage: UNK UNK, BID
     Route: 047
  2. OLOPATADINE. [Suspect]
     Active Substance: OLOPATADINE
     Dosage: 3 TO 4 TIMES A DAY
     Route: 047
     Dates: end: 20181101

REACTIONS (6)
  - Eye pain [Unknown]
  - Incorrect dose administered [Unknown]
  - Cataract [Unknown]
  - Vision blurred [Not Recovered/Not Resolved]
  - Concomitant disease aggravated [Unknown]
  - Drug ineffective [Unknown]
